FAERS Safety Report 9292484 (Version 3)
Quarter: 2018Q4

REPORT INFORMATION
  Report Type: Spontaneous
  Country: FR (occurrence: FR)
  Receive Date: 20130516
  Receipt Date: 20181203
  Transmission Date: 20190205
  Serious: Yes (Death, Congenital Anomaly)
  Sender: FDA-Public Use
  Company Number: FR-PFIZER INC-2013147406

PATIENT

DRUGS (6)
  1. REVIA [Suspect]
     Active Substance: NALTREXONE HYDROCHLORIDE
     Indication: ALCOHOLISM
     Dosage: 50 MG, 1X/DAY
     Route: 064
     Dates: end: 20121115
  2. COAPROVEL [Suspect]
     Active Substance: HYDROCHLOROTHIAZIDE\IRBESARTAN
     Dosage: UNK
     Route: 064
     Dates: end: 20121115
  3. LYRICA [Suspect]
     Active Substance: PREGABALIN
     Dosage: 150 MG, 2X/DAY
     Route: 064
     Dates: end: 20121115
  4. LOXEN [NICARDIPINE HYDROCHLORIDE] [Suspect]
     Active Substance: NICARDIPINE HYDROCHLORIDE
     Indication: HYPERTENSION
     Dosage: UNK
     Route: 064
  5. AOTAL [Suspect]
     Active Substance: ACAMPROSATE CALCIUM
     Indication: ALCOHOLISM
     Dosage: 1332 MG, 4 DOSAGE FORMS (DF) DAILY
     Route: 064
  6. TAHOR [Suspect]
     Active Substance: ATORVASTATIN CALCIUM
     Indication: DYSLIPIDAEMIA
     Dosage: 20 MG DAILY
     Route: 064
     Dates: end: 20121115

REACTIONS (7)
  - Maternal exposure during pregnancy [Fatal]
  - Congenital hand malformation [Fatal]
  - Umbilical hernia [Fatal]
  - Congenital hydrocephalus [Fatal]
  - Foetal alcohol syndrome [Fatal]
  - Foetal growth restriction [Fatal]
  - Limb malformation [Fatal]
